FAERS Safety Report 8604743 (Version 2)
Quarter: 2012Q4

REPORT INFORMATION
  Report Type: 
  Country: IT (occurrence: IT)
  Receive Date: 20120608
  Receipt Date: 20120912
  Transmission Date: 20130627
  Serious: Yes (Other)
  Sender: FDA-Public Use
  Company Number: IT-BRISTOL-MYERS SQUIBB COMPANY-16516437

PATIENT
  Sex: Female

DRUGS (1)
  1. ABILIFY TABS [Suspect]

REACTIONS (2)
  - Uterine dilation and curettage [Unknown]
  - Pregnancy [Unknown]
